FAERS Safety Report 11875831 (Version 1)
Quarter: 2015Q4

REPORT INFORMATION
  Report Type: Spontaneous
  Country: US (occurrence: US)
  Receive Date: 20151229
  Receipt Date: 20151229
  Transmission Date: 20160305
  Serious: No
  Sender: FDA-Public Use
  Company Number: US-VERTEX PHARMACEUTICALS-2015-004968

PATIENT
  Age: 28 Year
  Sex: Female

DRUGS (3)
  1. ORKAMBI [Suspect]
     Active Substance: IVACAFTOR\LUMACAFTOR
     Dosage: 1 TAB AM, 2 TABS PM, BID
     Route: 048
     Dates: start: 20151206
  2. ORKAMBI [Suspect]
     Active Substance: IVACAFTOR\LUMACAFTOR
     Dosage: FULL DOSE
     Route: 048
     Dates: start: 20151211
  3. ORKAMBI [Suspect]
     Active Substance: IVACAFTOR\LUMACAFTOR
     Indication: CYSTIC FIBROSIS
     Dosage: HALF DOSE
     Route: 048
     Dates: start: 20151204

REACTIONS (5)
  - Vomiting [Not Recovered/Not Resolved]
  - Nausea [Recovering/Resolving]
  - Pain [Recovered/Resolved]
  - Malaise [Recovered/Resolved]
  - Productive cough [Recovering/Resolving]

NARRATIVE: CASE EVENT DATE: 20151204
